FAERS Safety Report 24692606 (Version 1)
Quarter: 2024Q4

REPORT INFORMATION
  Report Type: Spontaneous
  Country: US (occurrence: US)
  Receive Date: 20241203
  Receipt Date: 20241203
  Transmission Date: 20250115
  Serious: Yes (Other)
  Sender: GENERICUS
  Company Number: US-GENERICUS, INC.-2024GNR00008

PATIENT
  Age: 71 Year
  Sex: Female

DRUGS (5)
  1. TOBRAMYCIN [Suspect]
     Active Substance: TOBRAMYCIN\TOBRAMYCIN SULFATE
     Indication: Arthritis infective
     Dosage: SPACER
  2. TOBRAMYCIN [Suspect]
     Active Substance: TOBRAMYCIN\TOBRAMYCIN SULFATE
     Indication: Device related infection
  3. PREDNISONE [Concomitant]
     Active Substance: PREDNISONE
     Indication: Rheumatoid arthritis
     Dosage: INITIAL; UNKOWN
  4. PREDNISONE [Concomitant]
     Active Substance: PREDNISONE
     Dosage: REDUCED DOSE
  5. VANCOMYCIN [Concomitant]
     Active Substance: VANCOMYCIN
     Dosage: SPACER

REACTIONS (2)
  - Renal tubular injury [Recovered/Resolved]
  - Acute kidney injury [Recovered/Resolved]
